FAERS Safety Report 20334683 (Version 1)
Quarter: 2022Q1

REPORT INFORMATION
  Report Type: Spontaneous
  Country: JP (occurrence: JP)
  Receive Date: 20220114
  Receipt Date: 20220114
  Transmission Date: 20220424
  Serious: Yes (Life-Threatening, Hospitalization)
  Sender: FDA-Public Use
  Company Number: JP-SUN PHARMACEUTICAL INDUSTRIES LTD-2021R1-307610

PATIENT
  Sex: Male
  Weight: 2.91 kg

DRUGS (8)
  1. ETIZOLAM [Suspect]
     Active Substance: ETIZOLAM
     Indication: Anxiety disorder
     Dosage: 0.5 MILLIGRAM DAILY
     Route: 064
  2. ETIZOLAM [Suspect]
     Active Substance: ETIZOLAM
     Dosage: 0.5 MILLIGRAM, DAILY
     Route: 063
  3. ETIZOLAM [Suspect]
     Active Substance: ETIZOLAM
     Dosage: 1 MILLIGRAM, DAILY
     Route: 063
  4. ETIZOLAM [Suspect]
     Active Substance: ETIZOLAM
     Dosage: 1 MILLIGRAM, DAILY
     Route: 064
  5. TRAZODONE [Suspect]
     Active Substance: TRAZODONE HYDROCHLORIDE
     Indication: Anxiety disorder
     Dosage: 50 MILLIGRAM, OD
     Route: 064
  6. TRAZODONE [Suspect]
     Active Substance: TRAZODONE HYDROCHLORIDE
     Dosage: 50 MILLIGRAM, OD
     Route: 063
  7. ASPIRIN [Suspect]
     Active Substance: ASPIRIN
     Indication: Pre-eclampsia
     Dosage: 81 MILLIGRAM, DAILY
     Route: 064
  8. ASPIRIN [Suspect]
     Active Substance: ASPIRIN
     Dosage: 81 MILLIGRAM, DAILY
     Route: 063

REACTIONS (4)
  - Respiratory disorder [Unknown]
  - Drug level abnormal [Unknown]
  - Exposure via breast milk [Unknown]
  - Foetal exposure during pregnancy [Unknown]
